FAERS Safety Report 16236346 (Version 1)
Quarter: 2019Q2

REPORT INFORMATION
  Report Type: Spontaneous
  Country: IN (occurrence: IN)
  Receive Date: 20190425
  Receipt Date: 20190425
  Transmission Date: 20190711
  Serious: Yes (Hospitalization, Other)
  Sender: FDA-Public Use
  Company Number: IN-SA-2019SA112445

PATIENT
  Sex: Male

DRUGS (4)
  1. DOXYCYCLINE SALT NOT SPECIFIED [Suspect]
     Active Substance: DOXYCYCLINE
     Indication: BRUCELLOSIS
     Dosage: UNK
  2. RIFAMPICIN [Suspect]
     Active Substance: RIFAMPIN
     Indication: BRUCELLOSIS
     Dosage: UNK
  3. CEFTRIAXONE. [Concomitant]
     Active Substance: CEFTRIAXONE
     Dosage: UNK
  4. GENTAMICIN SULFATE. [Suspect]
     Active Substance: GENTAMICIN SULFATE
     Indication: BRUCELLOSIS
     Dosage: UNK

REACTIONS (9)
  - Headache [Recovered/Resolved]
  - Arthralgia [Recovered/Resolved]
  - Visual field defect [Recovered/Resolved]
  - Papilloedema [Recovered/Resolved]
  - Intracranial pressure increased [Recovered/Resolved]
  - Ophthalmoplegia [Recovered/Resolved]
  - Body temperature increased [Recovered/Resolved]
  - Jarisch-Herxheimer reaction [Recovered/Resolved]
  - Rash maculo-papular [Recovered/Resolved]
